FAERS Safety Report 9663288 (Version 1)
Quarter: 2013Q4

REPORT INFORMATION
  Report Type: Spontaneous
  Country: US (occurrence: US)
  Receive Date: 20131101
  Receipt Date: 20131101
  Transmission Date: 20140711
  Serious: No
  Sender: FDA-Public Use
  Company Number: US-B.I. PHARMACEUTICALS,INC./RIDGEFIELD-2013-BI-33787BP

PATIENT
  Age: 82 Year
  Sex: Female
  Weight: 76 kg

DRUGS (8)
  1. PRADAXA [Suspect]
     Indication: CEREBROVASCULAR ACCIDENT PROPHYLAXIS
     Dosage: 150 MG
     Route: 048
     Dates: start: 2011
  2. PRADAXA [Suspect]
     Indication: ATRIAL FIBRILLATION
  3. TEKTURNA [Concomitant]
     Indication: HYPERTENSION
     Dosage: 150 MG
     Route: 048
  4. COREG [Concomitant]
  5. HYDROCHLOROTHIAZIDE [Concomitant]
     Indication: FLUID RETENTION
     Dosage: 12.5 MG
     Route: 048
  6. CYMBALTA [Concomitant]
     Dosage: 30 MG
     Route: 048
  7. MICARDIS [Concomitant]
     Indication: HYPERTENSION
     Dosage: 80 MG
     Route: 048
  8. SPIRONOLACTONE [Concomitant]
     Indication: FLUID RETENTION
     Dosage: 12.5 MG
     Route: 048

REACTIONS (2)
  - Fall [Not Recovered/Not Resolved]
  - Breast haematoma [Not Recovered/Not Resolved]
